FAERS Safety Report 7924695-0 (Version None)
Quarter: 2011Q4

REPORT INFORMATION
  Report Type: 
  Country: None (occurrence: None)
  Receive Date: 20111118
  Receipt Date: 20110325
  Transmission Date: 20120403
  Serious: No
  Sender: FDA-Public Use
  Company Number: US-AMGEN-USASP2011016217

PATIENT
  Age: 75 Year
  Sex: Female

DRUGS (7)
  1. DEXAMETHASONE [Concomitant]
  2. ENBREL [Suspect]
     Indication: RHEUMATOID ARTHRITIS
     Dosage: 50 MG, QWK
     Dates: start: 20080101
  3. FOLIC ACID [Concomitant]
  4. PREVACID [Concomitant]
  5. METHOTREXATE [Concomitant]
     Dosage: 12.5 MG, QWK
  6. POTASSIUM [Concomitant]
  7. COZAAR [Concomitant]

REACTIONS (1)
  - COUGH [None]
